FAERS Safety Report 7036196-5 (Version None)
Quarter: 2010Q4

REPORT INFORMATION
  Report Type: 
  Country: None (occurrence: None)
  Receive Date: 20101008
  Receipt Date: 20100803
  Transmission Date: 20110411
  Serious: No
  Sender: FDA-Public Use
  Company Number: US-BRISTOL-MYERS SQUIBB COMPANY-15223498

PATIENT
  Age: 63 Year
  Sex: Female

DRUGS (3)
  1. AVAPRO [Suspect]
     Indication: HYPERTENSION
     Dates: end: 20100726
  2. LIPITOR [Concomitant]
  3. PREMARIN [Concomitant]

REACTIONS (1)
  - COUGH [None]
